FAERS Safety Report 10678685 (Version 1)
Quarter: 2014Q4

REPORT INFORMATION
  Report Type: Spontaneous
  Country: US (occurrence: None)
  Receive Date: 20141223
  Receipt Date: 20141223
  Transmission Date: 20150529
  Serious: Yes (Other)
  Sender: FDA-Public Use
  Company Number: 201412045

PATIENT
  Age: 36 Year
  Sex: Male

DRUGS (1)
  1. TESTOPEL [Suspect]
     Active Substance: TESTOSTERONE
     Indication: HYPOGONADISM
     Route: 058
     Dates: start: 20131214

REACTIONS (3)
  - Implant site pain [None]
  - Implant site discharge [None]
  - Implant site bruising [None]

NARRATIVE: CASE EVENT DATE: 20140818
